FAERS Safety Report 7357529-6 (Version None)
Quarter: 2011Q1

REPORT INFORMATION
  Report Type: 
  Country: None (occurrence: None)
  Receive Date: 20110317
  Receipt Date: 20110103
  Transmission Date: 20110831
  Serious: Yes (Other)
  Sender: FDA-Public Use
  Company Number: US-BAYER-200942932NA

PATIENT
  Sex: Female
  Weight: 73 kg

DRUGS (4)
  1. CARAFATE [Concomitant]
     Route: 048
  2. ANAPROX DS [Concomitant]
     Indication: MUSCLE SPASMS
  3. YAZ [Suspect]
     Indication: DYSMENORRHOEA
     Route: 048
     Dates: start: 20080801, end: 20081201
  4. YAZ [Suspect]
     Indication: MENSTRUATION IRREGULAR
     Dosage: UNK
     Dates: start: 20080801, end: 20090301

REACTIONS (2)
  - CHOLELITHIASIS [None]
  - CHOLESTEROSIS [None]
